FAERS Safety Report 9153715 (Version 1)
Quarter: 2013Q1

REPORT INFORMATION
  Report Type: Spontaneous
  Country: IT (occurrence: IT)
  Receive Date: 20130214
  Receipt Date: 20130214
  Transmission Date: 20140127
  Serious: Yes (Other)
  Sender: FDA-Public Use
  Company Number: IT-RB-PW/020221/160

PATIENT
  Age: 27 Year
  Sex: Female
  Weight: 68 kg

DRUGS (6)
  1. SUBUTEX [Suspect]
     Indication: DRUG DEPENDENCE
     Dosage: 12-8MG QD SUBLINGUAL
     Route: 060
     Dates: start: 20010906, end: 20011003
  2. SUBUTEX [Suspect]
     Dosage: PARTNER^S DOSING 10-14 MG DAILY
     Route: 050
     Dates: start: 20010828
  3. FLUNITRAZEPAM [Suspect]
     Indication: PRODUCT USED FOR UNKNOWN INDICATION
     Dosage: 2 TABLETS DAILY
     Route: 048
  4. DIAZEPAM [Suspect]
     Indication: PRODUCT USED FOR UNKNOWN INDICATION
     Dosage: 15 DROPS QD P
     Route: 065
  5. CANNABIS [Suspect]
     Indication: PRODUCT USED FOR UNKNOWN INDICATION
     Dosage: UNKNOWN AMOUNT
     Route: 065
  6. METHADONE [Suspect]
     Indication: DRUG DEPENDENCE
     Dosage: 30-35MG DAILY
     Route: 065

REACTIONS (3)
  - Exposure during pregnancy [Recovered/Resolved]
  - Exposure via body fluid [Unknown]
  - Stillbirth [Recovered/Resolved]
